FAERS Safety Report 10722812 (Version 2)
Quarter: 2015Q1

REPORT INFORMATION
  Report Type: Spontaneous
  Country: CA (occurrence: CA)
  Receive Date: 20150120
  Receipt Date: 20150130
  Transmission Date: 20150721
  Serious: Yes (Hospitalization, Other)
  Sender: FDA-Public Use
  Company Number: CA-ROCHE-1522997

PATIENT
  Age: 63 Year
  Sex: Female

DRUGS (7)
  1. SEEBRI [Concomitant]
     Active Substance: GLYCOPYRRONIUM
  2. PREDNISONE. [Concomitant]
     Active Substance: PREDNISONE
  3. ALVESCO [Concomitant]
     Active Substance: CICLESONIDE
  4. CETIRIZINE [Concomitant]
     Active Substance: CETIRIZINE HYDROCHLORIDE
  5. XOLAIR [Suspect]
     Active Substance: OMALIZUMAB
     Indication: ASTHMA
     Route: 058
  6. SYMBICORT [Concomitant]
     Active Substance: BUDESONIDE\FORMOTEROL FUMARATE DIHYDRATE
  7. VENTOLINE [Concomitant]
     Active Substance: ALBUTEROL

REACTIONS (5)
  - Skin cancer [Unknown]
  - Pulmonary fibrosis [Unknown]
  - Pneumonia [Unknown]
  - Arthritis [Unknown]
  - Oral candidiasis [Unknown]

NARRATIVE: CASE EVENT DATE: 201311
